FAERS Safety Report 6671547-2 (Version None)
Quarter: 2010Q2

REPORT INFORMATION
  Report Type: 
  Country: None (occurrence: None)
  Receive Date: 20100406
  Receipt Date: 20100406
  Transmission Date: 20101027
  Serious: Yes (Hospitalization, Other)
  Sender: FDA-Public Use
  Company Number: None

PATIENT
  Age: 39 Year
  Sex: Female
  Weight: 74.3899 kg

DRUGS (1)
  1. AVELOX [Suspect]
     Indication: BRONCHITIS
     Dosage: 400 MG ONCE DAILY PO, 1 DAY DUE TO SEVERE REACT---
     Route: 048
     Dates: start: 20100329, end: 20100329

REACTIONS (7)
  - ANXIETY [None]
  - BURNING SENSATION [None]
  - FEELING ABNORMAL [None]
  - MUSCLE SPASMS [None]
  - NERVOUSNESS [None]
  - PALPITATIONS [None]
  - SLEEP DISORDER [None]
